FAERS Safety Report 23116348 (Version 1)
Quarter: 2023Q4

REPORT INFORMATION
  Report Type: Spontaneous
  Country: US (occurrence: US)
  Receive Date: 20231027
  Receipt Date: 20231027
  Transmission Date: 20240109
  Serious: Yes (Death, Other)
  Sender: FDA-Public Use
  Company Number: US-PFIZER INC-202300341718

PATIENT
  Age: 52 Year
  Sex: Female
  Weight: 62.6 kg

DRUGS (3)
  1. LEVOPHED [Suspect]
     Active Substance: NOREPINEPHRINE BITARTRATE
     Indication: Hypertension
     Dosage: VOLUME 250ML, BUT CALLER UNKNOWN HOW MANY BAGS PATIENT WAS GIVEN
     Route: 042
     Dates: start: 202307
  2. LEVOPHED [Suspect]
     Active Substance: NOREPINEPHRINE BITARTRATE
     Indication: Cardiac disorder
     Dosage: VOLUME 250ML, BUT CALLER UNKNOWN HOW MANY BAGS PATIENT WAS GIVEN
     Route: 042
     Dates: start: 20230705
  3. LEVOPHED [Suspect]
     Active Substance: NOREPINEPHRINE BITARTRATE
     Indication: Atrial fibrillation

REACTIONS (5)
  - Expired product administered [Fatal]
  - Off label use [Fatal]
  - Blastomycosis [Fatal]
  - Organ failure [Fatal]
  - Sepsis [Fatal]

NARRATIVE: CASE EVENT DATE: 20230701
